FAERS Safety Report 5936701-3 (Version None)
Quarter: 2008Q4

REPORT INFORMATION
  Report Type: 
  Country: None (occurrence: None)
  Receive Date: 20081030
  Receipt Date: 20081028
  Transmission Date: 20090506
  Serious: Yes (Disabling)
  Sender: FDA-Public Use
  Company Number: US-MERCK-0806USA00048

PATIENT
  Age: 75 Year
  Sex: Female
  Weight: 110 kg

DRUGS (8)
  1. JANUMET [Suspect]
     Indication: TYPE 2 DIABETES MELLITUS
     Route: 048
     Dates: start: 20080522, end: 20080525
  2. ACTOS [Concomitant]
     Route: 065
     Dates: end: 20080501
  3. GLYBURIDE [Concomitant]
     Route: 065
  4. AMLODIPINE BESYLATE [Concomitant]
     Route: 065
     Dates: start: 20060601
  5. CLONIDINE [Concomitant]
     Route: 048
     Dates: start: 20060501
  6. LOVASTATIN [Concomitant]
     Route: 048
     Dates: start: 20080201
  7. LASIX [Concomitant]
     Route: 048
     Dates: start: 20060501
  8. OMEPRAZOLE [Concomitant]
     Route: 048
     Dates: start: 20061201

REACTIONS (6)
  - ASTHENIA [None]
  - DISCOMFORT [None]
  - HEADACHE [None]
  - MALAISE [None]
  - NAUSEA [None]
  - VISION BLURRED [None]
